FAERS Safety Report 10078874 (Version 3)
Quarter: 2014Q2

REPORT INFORMATION
  Report Type: Spontaneous
  Country: BR (occurrence: BR)
  Receive Date: 20140415
  Receipt Date: 20140527
  Transmission Date: 20141212
  Serious: Yes (Other)
  Sender: FDA-Public Use
  Company Number: BR-SA-2014SA041933

PATIENT
  Sex: Male
  Weight: 90 kg

DRUGS (6)
  1. LANTUS [Suspect]
     Indication: TYPE 2 DIABETES MELLITUS
     Route: 058
     Dates: start: 2009
  2. AUTOPEN 24 [Suspect]
     Indication: DEVICE THERAPY
     Route: 065
  3. NOVORAPID [Concomitant]
     Indication: TYPE 2 DIABETES MELLITUS
     Dosage: IU^S ACCORDING TO THE GLYCEMIC INDEX
     Route: 058
     Dates: start: 2009
  4. ALL OTHER THERAPEUTIC PRODUCTS [Concomitant]
     Indication: BLOOD CHOLESTEROL
     Route: 048
     Dates: start: 2009
  5. EFFIENT [Concomitant]
     Indication: ANTICOAGULANT THERAPY
     Dosage: STRENGTH: 10 MG
     Route: 048
  6. CLIKSTAR [Concomitant]
     Dates: start: 2009

REACTIONS (5)
  - Arterial occlusive disease [Recovered/Resolved]
  - Agitation [Recovered/Resolved]
  - Chest discomfort [Recovered/Resolved]
  - Injection site pain [Recovered/Resolved]
  - Pain [Recovering/Resolving]
